FAERS Safety Report 4308699-5 (Version None)
Quarter: 2004Q1

REPORT INFORMATION
  Report Type: 
  Country: None (occurrence: None)
  Receive Date: 20040301
  Receipt Date: 20040301
  Transmission Date: 20041129
  Serious: Yes (Hospitalization)
  Sender: FDA-Public Use
  Company Number: None

PATIENT
  Age: 44 Year
  Sex: Male

DRUGS (2)
  1. ISONIAZID [Suspect]
  2. TRIMETHOPRIM + SULFAMETHOXAZOLE [Suspect]

REACTIONS (8)
  - DERMATITIS EXFOLIATIVE [None]
  - DIARRHOEA [None]
  - DIZZINESS [None]
  - DRY SKIN [None]
  - NAUSEA [None]
  - PAIN [None]
  - POLYURIA [None]
  - RASH [None]
